FAERS Safety Report 7792926-6 (Version None)
Quarter: 2011Q3

REPORT INFORMATION
  Report Type: 
  Country: None (occurrence: None)
  Receive Date: 20110929
  Receipt Date: 20110916
  Transmission Date: 20111222
  Serious: Yes (Hospitalization)
  Sender: FDA-Public Use
  Company Number: TCI2011A04830

PATIENT
  Age: 61 Year
  Sex: Male

DRUGS (4)
  1. ACTOS [Suspect]
     Indication: DIABETES MELLITUS
     Dosage: 15 MG (15 MG, 1 IN 1 D)
     Route: 048
     Dates: start: 20090126, end: 20110810
  2. MICARDIS [Concomitant]
  3. AMARYL [Concomitant]
  4. VOGLIBOSE [Concomitant]

REACTIONS (1)
  - BLADDER NEOPLASM [None]
